FAERS Safety Report 4892720-X (Version None)
Quarter: 2005Q4

REPORT INFORMATION
  Report Type: 
  Country: None (occurrence: None)
  Receive Date: 20051220
  Receipt Date: 20051104
  Transmission Date: 20060501
  Serious: Yes (Other)
  Sender: FDA-Public Use
  Company Number: 424081

PATIENT
  Age: 52 Year
  Sex: Female

DRUGS (4)
  1. BONIVA [Suspect]
     Indication: OSTEOPOROSIS
     Dosage: ORAL
     Route: 048
     Dates: start: 20051102, end: 20051102
  2. NEXIUM [Concomitant]
  3. TOPROL-XL [Concomitant]
  4. DIOVAN [Concomitant]

REACTIONS (1)
  - MUSCULAR WEAKNESS [None]
